FAERS Safety Report 4444432-4 (Version None)
Quarter: 2004Q3

REPORT INFORMATION
  Report Type: 
  Country: None (occurrence: None)
  Receive Date: 20040902
  Receipt Date: 20040816
  Transmission Date: 20050211
  Serious: Yes (Other)
  Sender: FDA-Public Use
  Company Number: US_981113583

PATIENT
  Sex: Female

DRUGS (1)
  1. HUMULIN 70/30 [Suspect]
     Indication: DIABETES MELLITUS
     Dosage: 17 U/2 DAY
     Dates: start: 19920101

REACTIONS (5)
  - ARTHRALGIA [None]
  - HYPERGLYCAEMIA [None]
  - INJECTION SITE REACTION [None]
  - NERVE COMPRESSION [None]
  - PNEUMONIA [None]
